FAERS Safety Report 21245833 (Version 3)
Quarter: 2022Q4

REPORT INFORMATION
  Report Type: Report from Study
  Country: US (occurrence: US)
  Receive Date: 20220824
  Receipt Date: 20221115
  Transmission Date: 20230113
  Serious: Yes (Other)
  Sender: FDA-Public Use
  Company Number: US-BRISTOL-MYERS SQUIBB COMPANY-2022-090561

PATIENT
  Age: 72 Year
  Sex: Male
  Weight: 151.5 kg

DRUGS (37)
  1. REVLIMID [Suspect]
     Active Substance: LENALIDOMIDE
     Indication: Plasma cell myeloma
     Dosage: STOP ON 06/AUG-2022-07/AUG/2022, DAILY FOR 21 DAYS OF A 28 DAY CYCLE
     Route: 048
     Dates: start: 20210202, end: 202208
  2. REVLIMID [Suspect]
     Active Substance: LENALIDOMIDE
     Route: 048
     Dates: start: 2022, end: 202210
  3. DEXAMETHASONE [Suspect]
     Active Substance: DEXAMETHASONE
     Indication: Product used for unknown indication
     Route: 065
  4. ACETAMINOPHEN [Concomitant]
     Active Substance: ACETAMINOPHEN
     Indication: Product used for unknown indication
     Route: 065
  5. ACETAMINOPHEN [Concomitant]
     Active Substance: ACETAMINOPHEN
     Route: 065
  6. VITAMIN D3 [Concomitant]
     Active Substance: CHOLECALCIFEROL
     Indication: Product used for unknown indication
     Route: 065
  7. VITAMIN D3 [Concomitant]
     Active Substance: CHOLECALCIFEROL
     Route: 065
  8. VITAMIN D3 [Concomitant]
     Active Substance: CHOLECALCIFEROL
     Route: 065
  9. IRON [Concomitant]
     Active Substance: IRON
     Indication: Product used for unknown indication
     Dosage: 100 PLUS 100-250-1
     Route: 065
  10. IRON [Concomitant]
     Active Substance: IRON
     Dosage: IRON 325
     Route: 065
  11. CULTURELLE [Concomitant]
     Active Substance: LACTOBACILLUS RHAMNOSUS
     Indication: Product used for unknown indication
     Dosage: 10B CELL
     Route: 065
  12. CALCIUM [Concomitant]
     Active Substance: CALCIUM
     Indication: Product used for unknown indication
     Route: 065
  13. ELIQUIS [Concomitant]
     Active Substance: APIXABAN
     Indication: Product used for unknown indication
     Route: 065
  14. COREG [Concomitant]
     Active Substance: CARVEDILOL
     Indication: Product used for unknown indication
     Route: 065
  15. GAS-X [Concomitant]
     Active Substance: DIMETHICONE
     Indication: Product used for unknown indication
     Dosage: EXTRA STRENGTH?SOFT GEL
     Route: 065
  16. GAS-X [Concomitant]
     Active Substance: DIMETHICONE
     Dosage: EXTRA STRENGTH?SOFT GEL
     Route: 065
  17. GAS-X [Concomitant]
     Active Substance: DIMETHICONE
     Dosage: EXTRA STRENGTH?SOFT GEL
     Route: 065
  18. ATORVASTATIN CALCIUM [Concomitant]
     Active Substance: ATORVASTATIN CALCIUM
     Indication: Product used for unknown indication
     Route: 065
  19. TUMS [Concomitant]
     Active Substance: CALCIUM CARBONATE
     Indication: Product used for unknown indication
     Dosage: TUMS 200
     Route: 065
  20. ASPIRIN [Concomitant]
     Active Substance: ASPIRIN
     Indication: Product used for unknown indication
     Dosage: LOW DOSE EC
     Route: 065
  21. LORATADINE [Concomitant]
     Active Substance: LORATADINE
     Indication: Product used for unknown indication
     Route: 065
  22. STOOL SOFTENER (DOCUSATE) [Concomitant]
     Active Substance: DOCUSATE
     Indication: Product used for unknown indication
     Route: 065
  23. AMIODARONE [Concomitant]
     Active Substance: AMIODARONE
     Indication: Product used for unknown indication
     Route: 065
  24. POTASSIUM CHLORIDE [Concomitant]
     Active Substance: POTASSIUM CHLORIDE
     Indication: Product used for unknown indication
     Dosage: ER
     Route: 065
  25. VELCADE [Concomitant]
     Active Substance: BORTEZOMIB
     Indication: Product used for unknown indication
     Dosage: VIAL
     Route: 065
  26. ACYCLOVIR [Concomitant]
     Active Substance: ACYCLOVIR
     Indication: Product used for unknown indication
     Route: 065
  27. COMBIGAN [Concomitant]
     Active Substance: BRIMONIDINE TARTRATE\TIMOLOL MALEATE
     Indication: Product used for unknown indication
     Route: 065
  28. VITAMIN B12 [Concomitant]
     Active Substance: CYANOCOBALAMIN
  29. AMIODARONE HYDROCHLORIDE [Concomitant]
     Active Substance: AMIODARONE HYDROCHLORIDE
  30. SPIRONOLACTONE [Concomitant]
     Active Substance: SPIRONOLACTONE
  31. VITAMINS NOS [Concomitant]
     Active Substance: VITAMINS
  32. VITAMIN C [Concomitant]
     Active Substance: ASCORBIC ACID
  33. CLOTRIMAZOLE [Concomitant]
     Active Substance: CLOTRIMAZOLE
     Dosage: CLOTRLMAZOLE-3  CREAM/APPL
  34. METOLAZONE [Concomitant]
     Active Substance: METOLAZONE
  35. PRAMIPEXOLE [Concomitant]
     Active Substance: PRAMIPEXOLE
  36. GLUTAMINE [LEVOGLUTAMIDE] [Concomitant]
  37. POTASSIUM [Concomitant]
     Active Substance: POTASSIUM

REACTIONS (7)
  - Bone marrow disorder [Unknown]
  - Food aversion [Unknown]
  - Asthenia [Unknown]
  - Renal disorder [Unknown]
  - Blood potassium abnormal [Unknown]
  - Arthropathy [Unknown]
  - Sleep disorder [Unknown]

NARRATIVE: CASE EVENT DATE: 20221001
